FAERS Safety Report 18599127 (Version 1)
Quarter: 2020Q4

REPORT INFORMATION
  Report Type: Report from Study
  Country: BR (occurrence: BR)
  Receive Date: 20201210
  Receipt Date: 20201210
  Transmission Date: 20210114
  Serious: Yes (Other)
  Sender: FDA-Public Use
  Company Number: NVSC2020BR326014

PATIENT
  Age: 45 Year
  Sex: Female

DRUGS (1)
  1. ENTRESTO [Suspect]
     Active Substance: SACUBITRIL\VALSARTAN
     Indication: PRODUCT USED FOR UNKNOWN INDICATION
     Dosage: 50 MG, BID (24/26 MG, EVERY 12 HOURS)
     Route: 065
     Dates: start: 20201109

REACTIONS (11)
  - Cardiac failure [Unknown]
  - Blood pressure abnormal [Recovering/Resolving]
  - Illness [Unknown]
  - Dyspnoea [Unknown]
  - Heart rate abnormal [Unknown]
  - Lung disorder [Recovered/Resolved]
  - Blood pressure decreased [Recovered/Resolved]
  - Product dose omission issue [Recovered/Resolved]
  - Syncope [Unknown]
  - Asthma [Unknown]
  - Breath odour [Unknown]

NARRATIVE: CASE EVENT DATE: 20201103
